FAERS Safety Report 25545422 (Version 2)
Quarter: 2025Q3

REPORT INFORMATION
  Report Type: Spontaneous
  Country: IN (occurrence: IN)
  Receive Date: 20250711
  Receipt Date: 20250911
  Transmission Date: 20251020
  Serious: Yes (Death, Other)
  Sender: PFIZER
  Company Number: IN-PFIZER INC-PV202400115306

PATIENT
  Age: 49 Year
  Sex: Female

DRUGS (8)
  1. CRIZOTINIB [Suspect]
     Active Substance: CRIZOTINIB
     Indication: Lung adenocarcinoma
     Route: 048
     Dates: start: 20240626
  2. CRIZOTINIB [Suspect]
     Active Substance: CRIZOTINIB
     Indication: Metastases to central nervous system
     Dosage: 250 MG, 2X/DAY FOR 2 MONTHS
     Route: 048
     Dates: start: 20240701, end: 202509
  3. VALPROATE SODIUM [Concomitant]
     Active Substance: VALPROATE SODIUM
     Dosage: 500 MG, 2X/DAY FOR 2 MONTHS
  4. FOLVITE [Concomitant]
     Active Substance: FOLIC ACID
     Dosage: 5 MG, 1X/DAY FOR 2 MONTHS
  5. LEVEPIL [Concomitant]
     Dosage: 500 MG, 2X/DAY FOR 2 MONTHS
  6. IMODIUM [Concomitant]
     Active Substance: LOPERAMIDE HYDROCHLORIDE
     Indication: Diarrhoea
  7. ONDEM MD [Concomitant]
     Indication: Nausea
  8. ONDEM MD [Concomitant]
     Indication: Vomiting

REACTIONS (2)
  - Death [Fatal]
  - Periorbital swelling [Unknown]

NARRATIVE: CASE EVENT DATE: 20250901
